FAERS Safety Report 5472941-8 (Version None)
Quarter: 2007Q4

REPORT INFORMATION
  Report Type: 
  Country: None (occurrence: None)
  Receive Date: 20071001
  Receipt Date: 20070120
  Transmission Date: 20080405
  Serious: Yes (Other)
  Sender: FDA-Public Use
  Company Number: US-ASTRAZENECA-2007UW01335

PATIENT
  Age: 42 Year
  Sex: Female

DRUGS (1)
  1. ARIMIDEX [Suspect]
     Route: 048
     Dates: start: 20061201

REACTIONS (3)
  - BONE PAIN [None]
  - COMPRESSION FRACTURE [None]
  - MUSCULOSKELETAL CHEST PAIN [None]
